FAERS Safety Report 6423598-0 (Version None)
Quarter: 2009Q4

REPORT INFORMATION
  Report Type: 
  Country: None (occurrence: None)
  Receive Date: 20091030
  Receipt Date: 20091030
  Transmission Date: 20100525
  Serious: Yes (Other)
  Sender: FDA-Public Use
  Company Number: None

PATIENT
  Age: 65 Year
  Sex: Female
  Weight: 73.4827 kg

DRUGS (3)
  1. SERTRALINE HCL [Suspect]
     Indication: ANXIETY
     Dosage: 1 1/2 DAY PO
     Route: 048
     Dates: start: 20090901, end: 20091001
  2. SERTRALINE HCL [Suspect]
     Indication: ANXIETY
     Dosage: 1 1/2/ DAY PO
     Route: 048
     Dates: start: 20091001, end: 20091026
  3. ZOLOFT [Suspect]

REACTIONS (5)
  - AGITATION [None]
  - ECONOMIC PROBLEM [None]
  - HEART RATE IRREGULAR [None]
  - PRODUCT SUBSTITUTION ISSUE [None]
  - PRURITUS [None]
